FAERS Safety Report 14741466 (Version 1)
Quarter: 2018Q2

REPORT INFORMATION
  Report Type: Spontaneous
  Country: JP (occurrence: JP)
  Receive Date: 20180410
  Receipt Date: 20180410
  Transmission Date: 20180711
  Serious: Yes (Other)
  Sender: FDA-Public Use
  Company Number: JP-ROCHE-2104927

PATIENT
  Sex: Male

DRUGS (1)
  1. RIVOTRIL [Suspect]
     Active Substance: CLONAZEPAM
     Indication: FACIAL PARALYSIS
     Dosage: DOSAGE IS UNCERTAIN.
     Route: 048
     Dates: start: 2008

REACTIONS (3)
  - Off label use [Unknown]
  - Pollakiuria [Unknown]
  - Renal impairment [Unknown]

NARRATIVE: CASE EVENT DATE: 2018
